FAERS Safety Report 7231546-9 (Version None)
Quarter: 2011Q1

REPORT INFORMATION
  Report Type: 
  Country: None (occurrence: None)
  Receive Date: 20110118
  Receipt Date: 20110113
  Transmission Date: 20110831
  Serious: Yes (Hospitalization)
  Sender: FDA-Public Use
  Company Number: AT-ABBOTT-11P-009-0697500-00

PATIENT
  Sex: Male

DRUGS (2)
  1. ENTOCORT EC [Concomitant]
     Indication: CROHN'S DISEASE
     Route: 048
  2. HUMIRA [Suspect]
     Indication: CROHN'S DISEASE
     Route: 058
     Dates: start: 20100329

REACTIONS (6)
  - ABDOMINAL PAIN [None]
  - WEIGHT DECREASED [None]
  - CIRCULATORY COLLAPSE [None]
  - LOSS OF CONSCIOUSNESS [None]
  - MALAISE [None]
  - ILL-DEFINED DISORDER [None]
